APPROVED DRUG PRODUCT: SEPTOCAINE
Active Ingredient: ARTICAINE HYDROCHLORIDE; EPINEPHRINE BITARTRATE
Strength: 4%;EQ 0.017MG BASE/1.7ML (4%;EQ 0.01MG BASE/ML)
Dosage Form/Route: INJECTABLE;INJECTION
Application: N020971 | Product #001
Applicant: DEPROCO INC
Approved: Apr 3, 2000 | RLD: Yes | RS: Yes | Type: RX